FAERS Safety Report 11418888 (Version 1)
Quarter: 2015Q3

REPORT INFORMATION
  Report Type: Spontaneous
  Country: GB (occurrence: GB)
  Receive Date: 20150826
  Receipt Date: 20150826
  Transmission Date: 20151125
  Serious: Yes (Hospitalization)
  Sender: FDA-Public Use
  Company Number: GB-AUROBINDO-AUR-APL-2015-07369

PATIENT
  Age: 8 Year
  Sex: Male
  Weight: 23.2 kg

DRUGS (4)
  1. FLUOXETINE [Concomitant]
     Active Substance: FLUOXETINE\FLUOXETINE HYDROCHLORIDE
     Indication: PRODUCT USED FOR UNKNOWN INDICATION
     Route: 065
  2. MELATONIN [Concomitant]
     Active Substance: MELATONIN
     Indication: PRODUCT USED FOR UNKNOWN INDICATION
     Route: 065
  3. RISPERIDONE. [Suspect]
     Active Substance: RISPERIDONE
     Indication: ABNORMAL BEHAVIOUR
     Dosage: 0.25 MG, TWO TIMES A DAY
     Route: 048
     Dates: start: 201507, end: 20150804
  4. SYTRON [Concomitant]
     Indication: PRODUCT USED FOR UNKNOWN INDICATION
     Route: 065

REACTIONS (12)
  - Posture abnormal [Recovering/Resolving]
  - Oculogyric crisis [Recovering/Resolving]
  - Posturing [Recovering/Resolving]
  - Dyskinesia [Recovering/Resolving]
  - Abnormal behaviour [Recovering/Resolving]
  - Extrapyramidal disorder [Recovering/Resolving]
  - Blood prolactin increased [Recovering/Resolving]
  - Dystonia [Recovering/Resolving]
  - Torticollis [Recovering/Resolving]
  - Opisthotonus [Recovering/Resolving]
  - Muscle rigidity [Recovering/Resolving]
  - Somnolence [Recovering/Resolving]

NARRATIVE: CASE EVENT DATE: 20150803
